FAERS Safety Report 8523432-9 (Version None)
Quarter: 2012Q3

REPORT INFORMATION
  Report Type: 
  Country: None (occurrence: None)
  Receive Date: 20120720
  Receipt Date: 20120718
  Transmission Date: 20120928
  Serious: Yes (Other)
  Sender: FDA-Public Use
  Company Number: US-PFIZER INC-2012173951

PATIENT
  Sex: Female
  Weight: 72.562 kg

DRUGS (2)
  1. XANAX XR [Suspect]
     Indication: ANXIETY
  2. XANAX XR [Suspect]
     Indication: NERVOUSNESS
     Dosage: 1 MG (TWO 0.5MG TABLETS), 1X/DAY
     Route: 048
     Dates: start: 20100101

REACTIONS (1)
  - DRUG DEPENDENCE [None]
